FAERS Safety Report 7536761-2 (Version None)
Quarter: 2011Q2

REPORT INFORMATION
  Report Type: 
  Country: None (occurrence: None)
  Receive Date: 20110609
  Receipt Date: 20110603
  Transmission Date: 20111010
  Serious: Yes (Hospitalization)
  Sender: FDA-Public Use
  Company Number: US-ROCHE-682715

PATIENT
  Sex: Female
  Weight: 85.5 kg

DRUGS (15)
  1. FENTANYL-100 [Concomitant]
     Route: 062
     Dates: start: 20090206
  2. BEVACIZUMAB [Suspect]
     Dosage: FORM: 25MG/ML VIALS, INTRAVENOUS DRIP
     Route: 042
     Dates: start: 20080723, end: 20091224
  3. 4 LIFE TRANSFER FACTOR [Concomitant]
     Dosage: DRUG NAME: TRANSFER-4-LIFE.
     Route: 048
     Dates: start: 20070301
  4. PHENERGAN HCL [Concomitant]
     Route: 048
     Dates: start: 20090227
  5. MINOCYCLINE HCL [Concomitant]
     Dosage: DRUG NAME: MINICYCLINE
     Route: 050
     Dates: start: 20080902
  6. LORTAB [Concomitant]
     Route: 048
     Dates: start: 20090320
  7. LISINOPRIL [Concomitant]
     Route: 048
     Dates: start: 20090807
  8. CIPROFLOXACIN HCL [Concomitant]
     Route: 048
     Dates: start: 20091231
  9. LOVENOX [Concomitant]
     Route: 058
     Dates: start: 20080723
  10. BEVACIZUMAB [Suspect]
     Route: 042
  11. ERLOTINIB HYDROCHLORIDE [Suspect]
     Dosage: 25 MG PILLS/BOTTLE
     Route: 048
     Dates: start: 20080723
  12. ERLOTINIB HYDROCHLORIDE [Suspect]
     Route: 048
     Dates: start: 20110418, end: 20110425
  13. THERA PLUS VITAMINS [Concomitant]
     Dosage: DRUG NAME; PLUS VITAMIN
     Route: 048
     Dates: start: 20070301
  14. ZOFRAN [Concomitant]
     Route: 042
     Dates: start: 20090227
  15. LEVAQUIN [Concomitant]
     Route: 048
     Dates: start: 20091230

REACTIONS (6)
  - BRONCHITIS VIRAL [None]
  - PERICARDIAL EFFUSION [None]
  - FUNGAL SEPSIS [None]
  - RASH [None]
  - PULMONARY HYPERTENSION [None]
  - GASTROOESOPHAGEAL REFLUX DISEASE [None]
